FAERS Safety Report 5990688-6 (Version None)
Quarter: 2008Q4

REPORT INFORMATION
  Report Type: 
  Country: None (occurrence: None)
  Receive Date: 20081211
  Receipt Date: 20081203
  Transmission Date: 20090506
  Serious: Yes (Other)
  Sender: FDA-Public Use
  Company Number: PHHY2008CA30719

PATIENT
  Age: 65 Year
  Sex: Male

DRUGS (3)
  1. DIOVAN [Suspect]
     Dosage: 160 MG, QD
     Route: 048
  2. DIOVAN [Suspect]
     Dosage: 80 MG, QD
     Route: 048
  3. FLOMAX [Concomitant]
     Dosage: UNK

REACTIONS (5)
  - CHROMATURIA [None]
  - FATIGUE [None]
  - MICTURITION FREQUENCY DECREASED [None]
  - PROSTATOMEGALY [None]
  - URINE ODOUR ABNORMAL [None]
